FAERS Safety Report 7676944-4 (Version None)
Quarter: 2011Q3

REPORT INFORMATION
  Report Type: 
  Country: None (occurrence: None)
  Receive Date: 20110811
  Receipt Date: 20110728
  Transmission Date: 20111222
  Serious: Yes (Hospitalization, Other)
  Sender: FDA-Public Use
  Company Number: DE-ELI_LILLY_AND_COMPANY-DE201107007555

PATIENT
  Age: 86 Year
  Sex: Female

DRUGS (2)
  1. FORTEO [Suspect]
     Indication: OSTEOPOROSIS
     Dosage: UNK, QD
     Route: 058
     Dates: start: 20100423, end: 20101001
  2. FORTEO [Suspect]
     Dosage: UNK, QD
     Route: 058
     Dates: start: 20110101

REACTIONS (2)
  - AORTIC ANEURYSM [None]
  - CHEST PAIN [None]
